FAERS Safety Report 6996581-4 (Version None)
Quarter: 2010Q3

REPORT INFORMATION
  Report Type: 
  Country: None (occurrence: None)
  Receive Date: 20100918
  Receipt Date: 20090527
  Transmission Date: 20110219
  Serious: No
  Sender: FDA-Public Use
  Company Number: US-WYE-H09504109

PATIENT
  Sex: Female

DRUGS (3)
  1. EFFEXOR XR [Suspect]
     Indication: ANXIETY
     Dosage: WEANED OFF FROM UNKNOWN DATE TO 2004
     Route: 048
  2. EFFEXOR XR [Suspect]
     Dosage: 37.5 MG, FREQUENCY UNSPECIFIED
     Route: 048
  3. EFFEXOR XR [Suspect]
     Route: 048

REACTIONS (2)
  - PARAESTHESIA [None]
  - UNEVALUABLE EVENT [None]
